FAERS Safety Report 6828890-3 (Version None)
Quarter: 2010Q3

REPORT INFORMATION
  Report Type: 
  Country: None (occurrence: None)
  Receive Date: 20100709
  Receipt Date: 20070224
  Transmission Date: 20110219
  Serious: No
  Sender: FDA-Public Use
  Company Number: US-PFIZER INC-2007015832

PATIENT
  Age: 62 Year
  Sex: Female
  Weight: 69.4 kg

DRUGS (4)
  1. CHANTIX [Suspect]
     Indication: SMOKING CESSATION THERAPY
     Dates: start: 20070201
  2. VITAMINS [Concomitant]
  3. INSULIN [Concomitant]
  4. OPHTHALMOLOGICALS [Concomitant]
     Indication: GLAUCOMA

REACTIONS (5)
  - INCREASED UPPER AIRWAY SECRETION [None]
  - NAUSEA [None]
  - POOR QUALITY SLEEP [None]
  - RETCHING [None]
  - VOMITING [None]
